FAERS Safety Report 19069542 (Version 1)
Quarter: 2021Q1

REPORT INFORMATION
  Report Type: Report from Study
  Country: US (occurrence: US)
  Receive Date: 20210329
  Receipt Date: 20210329
  Transmission Date: 20210420
  Serious: Yes (Hospitalization)
  Sender: FDA-Public Use
  Company Number: US-PFIZER INC-2021300827

PATIENT
  Age: 65 Year
  Sex: Male
  Weight: 115.65 kg

DRUGS (10)
  1. BLINDED BNT162C2 [Suspect]
     Active Substance: PIDACMERAN
     Indication: COVID-19 IMMUNISATION
     Dosage: SINGLE DOSE
     Route: 030
     Dates: start: 20200924, end: 20200924
  2. ALLOPURINOL. [Suspect]
     Active Substance: ALLOPURINOL
     Indication: GOUT
     Dosage: 100 MG, 1X/DAY
     Route: 048
     Dates: start: 201012
  3. VALSARTAN. [Suspect]
     Active Substance: VALSARTAN
     Indication: HYPERTENSION
     Dosage: 12.5/100 MG, AS NEEDED
     Route: 048
     Dates: start: 200712
  4. INDOCIN [Suspect]
     Active Substance: INDOMETHACIN
     Indication: GOUT
     Dosage: 100 MG, AS NEEDED
     Route: 048
     Dates: start: 201908
  5. BLINDED BNT162B1 [Suspect]
     Active Substance: ABDAVOMERAN
     Indication: COVID-19 IMMUNISATION
     Dosage: SINGLE DOSE
     Route: 030
     Dates: start: 20200924, end: 20200924
  6. GLYBURIDE. [Suspect]
     Active Substance: GLYBURIDE
     Indication: TYPE 2 DIABETES MELLITUS
     Dosage: 5 MG, 2X/DAY
     Route: 048
     Dates: start: 201212
  7. BLINDED BNT162B2 [Suspect]
     Active Substance: TOZINAMERAN
     Indication: COVID-19 IMMUNISATION
     Dosage: SINGLE DOSE
     Route: 030
     Dates: start: 20200924, end: 20200924
  8. PLACEBO [Suspect]
     Active Substance: UNSPECIFIED INGREDIENT
     Indication: COVID-19 IMMUNISATION
     Dosage: SINGLE DOSE
     Route: 030
     Dates: start: 20200924, end: 20200924
  9. ATORVASTATIN CALCIUM. [Suspect]
     Active Substance: ATORVASTATIN CALCIUM
     Indication: HYPERCHOLESTEROLAEMIA
     Dosage: 10 MG, 1X/DAY
     Route: 048
     Dates: start: 200812
  10. BNT?162A1. [Suspect]
     Active Substance: BNT-162A1
     Indication: COVID-19 IMMUNISATION
     Dosage: SINGLE DOSE
     Route: 030
     Dates: start: 20200924, end: 20200924

REACTIONS (1)
  - Ankle fracture [Recovered/Resolved with Sequelae]

NARRATIVE: CASE EVENT DATE: 20210224
